FAERS Safety Report 7715683-8 (Version None)
Quarter: 2011Q3

REPORT INFORMATION
  Report Type: 
  Country: None (occurrence: None)
  Receive Date: 20110823
  Receipt Date: 20110809
  Transmission Date: 20111222
  Serious: Yes (Hospitalization)
  Sender: FDA-Public Use
  Company Number: 100022934

PATIENT
  Age: 71 Year
  Sex: Female

DRUGS (6)
  1. ARICEPT (DONEPEZIL HYDROCHLRIDE) (DONEPEZIL HYDROCHLORIDE) [Concomitant]
  2. TETRAMIDE (MIANSERIN HYDROCHLORIDE ) (MIANSERIN HYDROCHLORIDE) [Concomitant]
  3. LANDSEN (CLONAZEPAM) (CLONAZEPAM) [Concomitant]
  4. MEMANTINE [Suspect]
     Indication: DEMENTIA ALZHEIMER'S TYPE
     Dosage: ORAL
     Route: 048
     Dates: start: 20110615
  5. MEMANTINE [Suspect]
     Indication: DEMENTIA ALZHEIMER'S TYPE
     Dosage: 20 MG (20 MG, 1 IN 1 D), ORAL
     Route: 048
     Dates: start: 20110803
  6. JZOLOFT (SERTRALINE HYDROCHLORIDE) (HYDROCHLORIDE) [Concomitant]

REACTIONS (3)
  - RESTLESSNESS [None]
  - EATING DISORDER [None]
  - POLLAKIURIA [None]
